FAERS Safety Report 4784526-7 (Version None)
Quarter: 2005Q3

REPORT INFORMATION
  Report Type: 
  Country: None (occurrence: None)
  Receive Date: 20050930
  Receipt Date: 20050922
  Transmission Date: 20060218
  Serious: Yes (Life-Threatening, Disabling)
  Sender: FDA-Public Use
  Company Number: GB-GLAXOSMITHKLINE-B0394814A

PATIENT
  Age: 67 Year
  Sex: Female
  Weight: 72.73 kg

DRUGS (11)
  1. AVANDIA [Suspect]
     Indication: DIABETES MELLITUS
     Dosage: 4MG PER DAY
     Route: 048
     Dates: start: 20050810, end: 20050817
  2. METFORMIN [Concomitant]
     Indication: DIABETES MELLITUS
     Dosage: 500MG PER DAY
     Route: 048
     Dates: start: 20050711, end: 20050720
  3. GLICLAZIDE [Concomitant]
     Indication: DIABETES MELLITUS
     Dosage: 80MG PER DAY
     Route: 048
     Dates: start: 20050706, end: 20050710
  4. CO-DYDRAMOL [Concomitant]
     Dosage: 2U SEE DOSAGE TEXT
     Route: 065
  5. BENDROFLUMETHIAZIDE [Concomitant]
     Dosage: 1U PER DAY
     Route: 065
  6. FUROSEMIDE [Concomitant]
     Dosage: 20MG IN THE MORNING
     Route: 065
  7. LANSOPRAZOLE [Concomitant]
     Dosage: 30MG PER DAY
     Route: 065
  8. LISINOPRIL [Concomitant]
     Dosage: 20MG PER DAY
     Route: 065
  9. ASPIRIN [Concomitant]
     Dosage: 75MG PER DAY
     Route: 065
  10. ATENOLOL [Concomitant]
     Dosage: 50MG PER DAY
     Route: 065
  11. SIMVASTATIN [Concomitant]
     Dosage: 40MG PER DAY
     Route: 065

REACTIONS (3)
  - DYSPNOEA [None]
  - LUNG CREPITATION [None]
  - OEDEMA PERIPHERAL [None]
